FAERS Safety Report 4952484-8 (Version None)
Quarter: 2006Q1

REPORT INFORMATION
  Report Type: 
  Country: None (occurrence: None)
  Receive Date: 20060323
  Receipt Date: 20050707
  Transmission Date: 20060701
  Serious: Yes (Other)
  Sender: FDA-Public Use
  Company Number: US-MERCK-0507USA01262

PATIENT
  Age: 46 Year
  Sex: Female

DRUGS (5)
  1. VIOXX [Suspect]
     Route: 048
     Dates: start: 20030201, end: 20041001
  2. COZAAR [Concomitant]
     Indication: HYPERTENSION
     Route: 048
     Dates: start: 20030101, end: 20050101
  3. ASPIRIN [Concomitant]
     Route: 065
     Dates: start: 20030801
  4. GLUCOPHAGE [Concomitant]
     Indication: DIABETES MELLITUS
     Route: 065
     Dates: start: 20000801
  5. AVANDIA [Concomitant]
     Indication: DIABETES MELLITUS
     Route: 065

REACTIONS (2)
  - BLOOD CHOLESTEROL INCREASED [None]
  - MYOCARDIAL INFARCTION [None]
